FAERS Safety Report 9714885 (Version 1)
Quarter: 2013Q4

REPORT INFORMATION
  Report Type: Report from Study
  Country: US (occurrence: US)
  Receive Date: 20131126
  Receipt Date: 20131126
  Transmission Date: 20140711
  Serious: Yes (Hospitalization)
  Sender: FDA-Public Use
  Company Number: US-US-EMD SERONO, INC.-7251974

PATIENT
  Age: 42 Year
  Sex: Female

DRUGS (1)
  1. REBIF [Suspect]
     Indication: MULTIPLE SCLEROSIS
     Route: 058
     Dates: start: 20070801

REACTIONS (7)
  - Staphylococcal sepsis [Recovered/Resolved]
  - Wound [Recovered/Resolved]
  - Gangrene [Recovered/Resolved]
  - Tooth disorder [Recovering/Resolving]
  - Malaise [Recovered/Resolved]
  - Fatigue [Recovered/Resolved]
  - Injection site reaction [Not Recovered/Not Resolved]
